FAERS Safety Report 4947326-0 (Version None)
Quarter: 2006Q1

REPORT INFORMATION
  Report Type: 
  Country: None (occurrence: None)
  Receive Date: 20060317
  Receipt Date: 20060214
  Transmission Date: 20060701
  Serious: Yes (Other)
  Sender: FDA-Public Use
  Company Number: BR-BOEHRINGER INGELHEIM PHARMACEUTICALS, INC.-2006-BP-01670BR

PATIENT
  Sex: Male
  Weight: 75 kg

DRUGS (4)
  1. TIPRANAVIR / RITONAVIR CAPSULES [Suspect]
     Indication: HIV INFECTION
     Dosage: TIPRANAVIR/RITONAVIR: 1000/400MG AS DAILY DOSE
     Route: 048
     Dates: start: 20051122, end: 20060203
  2. ABACAVIR [Concomitant]
     Indication: HIV INFECTION
     Route: 048
     Dates: start: 20051122, end: 20060203
  3. AZT [Concomitant]
     Indication: HIV INFECTION
     Route: 048
     Dates: start: 20051122, end: 20060203
  4. LAMIVUDINE [Concomitant]
     Indication: HIV INFECTION
     Route: 048
     Dates: start: 20051122

REACTIONS (1)
  - NEPHROTIC SYNDROME [None]
